FAERS Safety Report 6399977-7 (Version None)
Quarter: 2009Q4

REPORT INFORMATION
  Report Type: 
  Country: None (occurrence: None)
  Receive Date: 20091008
  Receipt Date: 20091008
  Transmission Date: 20100525
  Serious: Yes (Life-Threatening, Hospitalization)
  Sender: FDA-Public Use
  Company Number: None

PATIENT
  Age: 85 Year
  Sex: Male
  Weight: 80 kg

DRUGS (1)
  1. MORPHINE [Suspect]
     Indication: ARTHRALGIA
     Dosage: 2MG Q2H PRN IV
     Route: 042

REACTIONS (2)
  - HYPOTENSION [None]
  - RESPIRATORY RATE DECREASED [None]
